FAERS Safety Report 5790972-5 (Version None)
Quarter: 2008Q2

REPORT INFORMATION
  Report Type: 
  Country: None (occurrence: None)
  Receive Date: 20080626
  Receipt Date: 20080226
  Transmission Date: 20081010
  Serious: No
  Sender: FDA-Public Use
  Company Number: A0711850A

PATIENT
  Age: 29 Year
  Sex: Female

DRUGS (1)
  1. ALLI [Suspect]
     Dates: start: 20080205, end: 20080223

REACTIONS (2)
  - CONSTIPATION [None]
  - UTERINE PAIN [None]
